FAERS Safety Report 4513573-5 (Version None)
Quarter: 2004Q4

REPORT INFORMATION
  Report Type: 
  Country: None (occurrence: None)
  Receive Date: 20041130
  Receipt Date: 20040803
  Transmission Date: 20050328
  Serious: No
  Sender: FDA-Public Use
  Company Number: US-GLAXOSMITHKLINE-A0520774A

PATIENT
  Age: 57 Year
  Sex: Female

DRUGS (12)
  1. WELLBUTRIN XL [Suspect]
     Indication: DEPRESSION
     Dosage: 150MG PER DAY
     Route: 048
     Dates: start: 20030101
  2. COMBIVENT [Concomitant]
  3. NORVASC [Concomitant]
  4. K-DUR [Concomitant]
  5. GLUCOTROL XL [Concomitant]
  6. GLUCOPHAGE [Concomitant]
  7. DEMADEX [Concomitant]
  8. ESTRATEST H.S. [Concomitant]
  9. AYGESTIN [Concomitant]
  10. METHADONE [Concomitant]
  11. ATIVAN [Concomitant]
  12. AMBIEN [Concomitant]

REACTIONS (5)
  - AGITATION [None]
  - ANXIETY [None]
  - CHEST PAIN [None]
  - CHILLS [None]
  - HYPERHIDROSIS [None]
